FAERS Safety Report 8588599-5 (Version None)
Quarter: 2012Q3

REPORT INFORMATION
  Report Type: 
  Country: None (occurrence: None)
  Receive Date: 20120813
  Receipt Date: 20120802
  Transmission Date: 20120928
  Serious: Yes (Other)
  Sender: FDA-Public Use
  Company Number: IE-JNJFOC-20120802900

PATIENT
  Age: 79 Year
  Sex: Male

DRUGS (5)
  1. WARFARIN SODIUM [Interacting]
     Indication: PROPHYLAXIS
     Route: 065
     Dates: start: 20120628
  2. WARFARIN SODIUM [Interacting]
     Route: 065
  3. MICONAZOLE [Suspect]
     Route: 061
  4. MICONAZOLE [Suspect]
     Indication: PRODUCT USED FOR UNKNOWN INDICATION
     Route: 061
     Dates: start: 20120628
  5. RANEXA [Concomitant]
     Indication: PRODUCT USED FOR UNKNOWN INDICATION
     Route: 065

REACTIONS (3)
  - DRUG INTERACTION [None]
  - HAEMATURIA [None]
  - INTERNATIONAL NORMALISED RATIO INCREASED [None]
